FAERS Safety Report 12683135 (Version 1)
Quarter: 2016Q3

REPORT INFORMATION
  Report Type: Spontaneous
  Country: US (occurrence: None)
  Receive Date: 20160824
  Receipt Date: 20160824
  Transmission Date: 20161109
  Serious: No
  Sender: FDA-Public Use
  Company Number: None

PATIENT
  Age: 29 Year
  Sex: Female
  Weight: 65.77 kg

DRUGS (1)
  1. NEXPLANON [Suspect]
     Active Substance: ETONOGESTREL
     Indication: CONTRACEPTION
     Dates: start: 20160301, end: 20160301

REACTIONS (7)
  - Mood swings [None]
  - Depressed mood [None]
  - Ocular icterus [None]
  - Fatigue [None]
  - Dizziness [None]
  - Headache [None]
  - Menstrual disorder [None]

NARRATIVE: CASE EVENT DATE: 20160823
